FAERS Safety Report 7314513-6 (Version None)
Quarter: 2011Q1

REPORT INFORMATION
  Report Type: 
  Country: None (occurrence: None)
  Receive Date: 20110225
  Receipt Date: 20100916
  Transmission Date: 20110831
  Serious: Yes (Other)
  Sender: FDA-Public Use
  Company Number: US-MYLANLABS-2010S1017217

PATIENT
  Age: 26 Year
  Sex: Female

DRUGS (3)
  1. PLAQUENIL [Concomitant]
  2. AMNESTEEM [Suspect]
     Indication: ACNE
     Route: 048
     Dates: end: 20100701
  3. CLARAVIS [Suspect]
     Indication: ACNE
     Route: 048
     Dates: end: 20100901

REACTIONS (2)
  - CROHN'S DISEASE [None]
  - DIARRHOEA [None]
